FAERS Safety Report 4715348-0 (Version None)
Quarter: 2005Q3

REPORT INFORMATION
  Report Type: 
  Country: None (occurrence: None)
  Receive Date: 20050715
  Receipt Date: 20050311
  Transmission Date: 20060218
  Serious: Yes (Hospitalization, Disabling)
  Sender: FDA-Public Use
  Company Number: US-MERCK-0503USA02587

PATIENT
  Age: 65 Year
  Sex: Male
  Weight: 102 kg

DRUGS (6)
  1. VIOXX [Suspect]
     Indication: ARTHRALGIA
     Route: 048
     Dates: start: 19990828, end: 20040925
  2. VIOXX [Suspect]
     Route: 048
     Dates: start: 19990828
  3. AVAPRO [Concomitant]
     Indication: HYPERTENSION
     Route: 048
     Dates: start: 19990430, end: 20000424
  4. AVALIDE [Concomitant]
     Route: 065
  5. LIPITOR [Concomitant]
     Route: 065
  6. HYDRODIURIL [Concomitant]
     Route: 048

REACTIONS (18)
  - ACUTE MYOCARDIAL INFARCTION [None]
  - ANGINA PECTORIS [None]
  - AORTIC ANEURYSM [None]
  - ARTHRITIS [None]
  - BLOOD CHOLESTEROL INCREASED [None]
  - BLOOD TRIGLYCERIDES INCREASED [None]
  - CARDIAC MURMUR [None]
  - CHEST PAIN [None]
  - CORONARY ARTERY ATHEROSCLEROSIS [None]
  - CORONARY ARTERY DISEASE [None]
  - CORONARY ARTERY STENOSIS [None]
  - DIZZINESS [None]
  - HEADACHE [None]
  - HYPERHIDROSIS [None]
  - HYPERTENSION [None]
  - OTORRHOEA [None]
  - SINUS BRADYCARDIA [None]
  - VENTRICULAR HYPERTROPHY [None]
